FAERS Safety Report 12781176 (Version 2)
Quarter: 2016Q4

REPORT INFORMATION
  Report Type: Spontaneous
  Country: US (occurrence: US)
  Receive Date: 20160926
  Receipt Date: 20161004
  Transmission Date: 20170207
  Serious: Yes (Hospitalization, Disabling)
  Sender: FDA-Public Use
  Company Number: US-SA-2016SA169424

PATIENT
  Age: 56 Year
  Sex: Female

DRUGS (3)
  1. LIDOCAINE. [Suspect]
     Active Substance: LIDOCAINE
     Dosage: 2 ML OF 1% LIDOCAINE
     Route: 014
  2. TRIAMCINOLONE ACETONIDE. [Suspect]
     Active Substance: TRIAMCINOLONE ACETONIDE
     Indication: OSTEOARTHRITIS
     Dosage: 2 ML (40 MG) OF TRIAMCINOLONE ACETONIDE
     Route: 014
  3. HYLAN G-F 20 [Concomitant]
     Active Substance: HYALURONATE SODIUM

REACTIONS (7)
  - Joint swelling [Recovering/Resolving]
  - Inflammation [Recovering/Resolving]
  - Aspiration joint abnormal [Recovering/Resolving]
  - Leukocytosis [Recovered/Resolved]
  - Osteoarthritis [Recovering/Resolving]
  - Arthralgia [Not Recovered/Not Resolved]
  - Gait disturbance [Recovering/Resolving]
